FAERS Safety Report 10248846 (Version 1)
Quarter: 2014Q2

REPORT INFORMATION
  Report Type: Spontaneous
  Country: US (occurrence: US)
  Receive Date: 20140620
  Receipt Date: 20140620
  Transmission Date: 20141212
  Serious: No
  Sender: FDA-Public Use
  Company Number: US-JNJFOC-20140605883

PATIENT
  Sex: Female
  Weight: 58.97 kg

DRUGS (2)
  1. SANDOZ FENTANYL TRANSDERMAL SYSTEM [Suspect]
     Indication: PELVIC PAIN
     Route: 062
     Dates: start: 2013
  2. NORCO [Concomitant]
     Indication: PAIN
     Route: 065
     Dates: start: 2011

REACTIONS (2)
  - Wrong technique in drug usage process [Unknown]
  - Drug administered at inappropriate site [Unknown]
